FAERS Safety Report 9342348 (Version 2)
Quarter: 2013Q3

REPORT INFORMATION
  Report Type: Spontaneous
  Country: DE (occurrence: DE)
  Receive Date: 20130611
  Receipt Date: 20130802
  Transmission Date: 20140515
  Serious: Yes (Other)
  Sender: FDA-Public Use
  Company Number: DE-JNJFOC-20130603208

PATIENT
  Age: 18 Year
  Sex: Male
  Weight: 86.17 kg

DRUGS (1)
  1. XARELTO [Suspect]
     Indication: PULMONARY EMBOLISM
     Route: 048
     Dates: start: 20120717, end: 20121215

REACTIONS (3)
  - Depression suicidal [Recovered/Resolved]
  - Depression [Recovered/Resolved]
  - Mental disorder [Recovered/Resolved]
